FAERS Safety Report 22156524 (Version 1)
Quarter: 2023Q1

REPORT INFORMATION
  Report Type: Spontaneous
  Country: US (occurrence: None)
  Receive Date: 20230330
  Receipt Date: 20230330
  Transmission Date: 20230417
  Serious: Yes (Other)
  Sender: FDA-Public Use
  Company Number: None

PATIENT
  Age: 60 Year
  Sex: Female
  Weight: 58.05 kg

DRUGS (6)
  1. TYMLOS [Suspect]
     Active Substance: ABALOPARATIDE
     Indication: Osteoporosis
     Dosage: AT BEDTIME SUBCUTANEOUS
     Route: 058
     Dates: start: 20230310
  2. LIPITOR [Concomitant]
     Active Substance: ATORVASTATIN CALCIUM
  3. CELEBREX [Concomitant]
     Active Substance: CELECOXIB
  4. PREMARIN [Concomitant]
     Active Substance: ESTROGENS, CONJUGATED
  5. VITAMIN D [Concomitant]
     Active Substance: VITAMIN D NOS
  6. VITAMIN 12 [Concomitant]

REACTIONS (3)
  - Dehydration [None]
  - Hypoglycaemia [None]
  - Orthostatic hypotension [None]

NARRATIVE: CASE EVENT DATE: 20230330
